FAERS Safety Report 9769748 (Version 1)
Quarter: 2013Q4

REPORT INFORMATION
  Report Type: Spontaneous
  Country: US (occurrence: US)
  Receive Date: 20131218
  Receipt Date: 20131218
  Transmission Date: 20140711
  Serious: No
  Sender: FDA-Public Use
  Company Number: US-VERTEX PHARMACEUTICALS INC-AE-2011-000565

PATIENT
  Sex: 0

DRUGS (8)
  1. INCIVEK [Suspect]
     Indication: HEPATITIS C
     Route: 048
     Dates: start: 20110715
  2. PEGASYS [Concomitant]
     Indication: HEPATITIS C
     Route: 058
     Dates: start: 20110715
  3. RIBAVIRIN [Concomitant]
     Indication: HEPATITIS C
     Route: 048
     Dates: start: 20110715
  4. MINOCYCLINE [Concomitant]
     Indication: ACNE
     Route: 048
     Dates: start: 2010
  5. LITHIUM [Concomitant]
     Indication: BIPOLAR DISORDER
     Dates: start: 2010
  6. SEROQUEL [Concomitant]
     Indication: INSOMNIA
     Route: 048
     Dates: start: 2010
  7. OMEPRAZOLE [Concomitant]
     Indication: DYSPEPSIA
     Route: 048
     Dates: start: 2010
  8. VITAMIN D3 [Concomitant]
     Indication: VITAMIN D DEFICIENCY
     Route: 048
     Dates: start: 2010

REACTIONS (1)
  - Rash pruritic [Not Recovered/Not Resolved]
